FAERS Safety Report 23357033 (Version 1)
Quarter: 2023Q4

REPORT INFORMATION
  Report Type: Spontaneous
  Country: US (occurrence: None)
  Receive Date: 20231230
  Receipt Date: 20231230
  Transmission Date: 20240109
  Serious: Yes (Disabling)
  Sender: FDA-Public Use
  Company Number: None

PATIENT
  Age: 20 Year
  Sex: Male
  Weight: 72 kg

DRUGS (4)
  1. ALKA SELTZER PLUS COLD [Suspect]
     Active Substance: ASPIRIN\CHLORPHENIRAMINE MALEATE\PHENYLEPHRINE BITARTRATE
     Indication: Nasopharyngitis
     Dosage: OTHER QUANTITY : 2 CAPSULE(S);?FREQUENCY : EVERY 4 HOURS;?
     Route: 048
     Dates: start: 20231226, end: 20231227
  2. ALKA SELTZER PLUS MAXIMUM STRENGTH SINUS, ALLERGY AND COUGH POWER MAX [Suspect]
     Active Substance: ACETAMINOPHEN\DEXTROMETHORPHAN HYDROBROMIDE\DOXYLAMINE SUCCINATE\PHENYLEPHRINE HYDROCHLORIDE
  3. Protein powder [Concomitant]
  4. VITAMINS [Concomitant]
     Active Substance: VITAMINS

REACTIONS (2)
  - Diarrhoea [None]
  - Product formulation issue [None]

NARRATIVE: CASE EVENT DATE: 20231226
